FAERS Safety Report 8529740-X (Version None)
Quarter: 2012Q2

REPORT INFORMATION
  Report Type: 
  Country: None (occurrence: None)
  Receive Date: 20120410
  Receipt Date: 20111212
  Transmission Date: 20120825
  Serious: No
  Sender: FDA-Public Use
  Company Number: AUR-APL-2011-05460

PATIENT
  Age: 90 Year
  Sex: Female
  Weight: 61 kg

DRUGS (8)
  1. LASIX [Concomitant]
  2. COUMADIN [Concomitant]
  3. INDERALPROOPRANOLOL) [Concomitant]
  4. SPIRONOLACTONE [Concomitant]
  5. RAMIPRIL [Suspect]
     Indication: CARDIAC FAILURE
     Dosage: 2.5 MG, 1 D, ORAL;
     Route: 048
     Dates: start: 20110101
  6. IRON [Concomitant]
  7. LISINOPRIL [Suspect]
     Indication: CARDIAC FAILURE
     Dates: start: 20110101, end: 20110101
  8. LEXOTAN (BROMAZEPAM) [Suspect]
     Indication: CARDIAC FAILURE
     Dates: start: 20110101, end: 20110101

REACTIONS (8)
  - OEDEMA PERIPHERAL [None]
  - COUGH [None]
  - THROAT IRRITATION [None]
  - FLUID RETENTION [None]
  - INSOMNIA [None]
  - HEART RATE INCREASED [None]
  - RHINORRHOEA [None]
  - SNEEZING [None]
